FAERS Safety Report 8768040 (Version 1)
Quarter: 2012Q4

REPORT INFORMATION
  Report Type: 
  Country: US (occurrence: US)
  Receive Date: 20120904
  Receipt Date: 20120904
  Transmission Date: 20130627
  Serious: No
  Sender: FDA-Public Use
  Company Number: US-AMGEN-USASP2012053941

PATIENT
  Age: 47 Year
  Sex: Female

DRUGS (4)
  1. ENBREL [Suspect]
     Indication: PSORIATIC ARTHROPATHY
     Dosage: weekly
     Dates: start: 2003
  2. METHOTREXATE [Concomitant]
     Dosage: UNK
  3. HUMIRA [Concomitant]
     Dosage: UNK
  4. SIMPONI [Concomitant]
     Dosage: UNK

REACTIONS (7)
  - Skin induration [Not Recovered/Not Resolved]
  - Dry skin [Not Recovered/Not Resolved]
  - Skin exfoliation [Not Recovered/Not Resolved]
  - Aphonia [Not Recovered/Not Resolved]
  - Pharyngitis [Recovered/Resolved]
  - Drug ineffective [Not Recovered/Not Resolved]
  - Fungal infection [Not Recovered/Not Resolved]
